FAERS Safety Report 7034911-8 (Version None)
Quarter: 2010Q4

REPORT INFORMATION
  Report Type: 
  Country: None (occurrence: None)
  Receive Date: 20101008
  Receipt Date: 20100929
  Transmission Date: 20110411
  Serious: Yes (Other)
  Sender: FDA-Public Use
  Company Number: JP-SANOFI-AVENTIS-2010SA058483

PATIENT
  Age: 56 Year
  Sex: Male

DRUGS (7)
  1. ALLEGRA [Suspect]
     Route: 048
     Dates: start: 20100816, end: 20100927
  2. RIZABEN [Suspect]
     Route: 065
     Dates: start: 20100816, end: 20100927
  3. AZELASTINE HCL [Concomitant]
  4. DIOVAN [Concomitant]
  5. EPLERENONE [Concomitant]
  6. PLAVIX [Concomitant]
  7. OMEPRAZOLE [Concomitant]

REACTIONS (2)
  - JAUNDICE [None]
  - LIVER FUNCTION TEST ABNORMAL [None]
